FAERS Safety Report 8539884-4 (Version None)
Quarter: 2012Q2

REPORT INFORMATION
  Report Type: 
  Country: None (occurrence: None)
  Receive Date: 20120416
  Receipt Date: 20090805
  Transmission Date: 20120825
  Serious: Yes (Other)
  Sender: FDA-Public Use
  Company Number: PHEH2009US08827

PATIENT
  Sex: Female

DRUGS (4)
  1. DIOVAN [Suspect]
     Dosage: 40MG
     Dates: start: 20090201
  2. MAGNESIUM (MAGNESIUM) [Concomitant]
  3. METOPROLOL TARTRATE [Suspect]
     Dates: end: 20090601
  4. POTASSIUM (POTASSIUM) [Concomitant]

REACTIONS (4)
  - DIZZINESS [None]
  - LOSS OF CONSCIOUSNESS [None]
  - DYSSTASIA [None]
  - HYPOTENSION [None]
